FAERS Safety Report 9251601 (Version 5)
Quarter: 2013Q3

REPORT INFORMATION
  Report Type: Spontaneous
  Country: JP (occurrence: JP)
  Receive Date: 20130424
  Receipt Date: 20130805
  Transmission Date: 20140515
  Serious: Yes (Death)
  Sender: FDA-Public Use
  Company Number: JP-ELI_LILLY_AND_COMPANY-JP201304006055

PATIENT
  Age: 69 Year
  Sex: Male
  Weight: 66 kg

DRUGS (10)
  1. CYMBALTA [Suspect]
     Indication: DEPRESSION
     Dosage: 40 MG, QD
     Route: 048
     Dates: start: 20130116, end: 20130301
  2. MYSLEE [Concomitant]
     Indication: INSOMNIA
     Dosage: UNK
     Dates: start: 20130301
  3. LEVOTOMIN [Concomitant]
     Indication: INSOMNIA
     Dosage: UNK
     Dates: start: 20130301
  4. OLMETEC [Concomitant]
     Indication: HYPERTENSION
     Dosage: UNK
  5. CALBLOCK [Concomitant]
     Indication: HYPERTENSION
     Dosage: UNK
  6. DEPAKENE-R [Concomitant]
     Indication: ANXIETY
     Dosage: UNK
     Dates: start: 20130301
  7. DEPAKENE-R [Concomitant]
     Indication: IRRITABILITY
  8. LOXONIN [Concomitant]
     Indication: PAIN IN EXTREMITY
     Dosage: UNK
  9. REBAMIPIDE [Concomitant]
     Indication: PROPHYLAXIS AGAINST GASTROINTESTINAL ULCER
     Dosage: UNK
  10. YOKUKAN-SAN [Concomitant]
     Dosage: UNK
     Dates: start: 20130304

REACTIONS (2)
  - Activation syndrome [Fatal]
  - Completed suicide [Fatal]
